FAERS Safety Report 9374106 (Version 1)
Quarter: 2013Q2

REPORT INFORMATION
  Report Type: Spontaneous
  Country: US (occurrence: US)
  Receive Date: 20130628
  Receipt Date: 20130628
  Transmission Date: 20140414
  Serious: No
  Sender: FDA-Public Use
  Company Number: US-BIOGENIDEC-2013BI056215

PATIENT
  Sex: Male

DRUGS (3)
  1. TYSABRI [Suspect]
     Indication: MULTIPLE SCLEROSIS
     Route: 042
  2. TECFIDERA [Concomitant]
     Route: 048
  3. TECFIDERA [Concomitant]
     Route: 048

REACTIONS (3)
  - Mobility decreased [Unknown]
  - Speech disorder [Unknown]
  - Feeling abnormal [Unknown]
